FAERS Safety Report 21074191 (Version 1)
Quarter: 2022Q3

REPORT INFORMATION
  Report Type: Spontaneous
  Country: JP (occurrence: JP)
  Receive Date: 20220713
  Receipt Date: 20220713
  Transmission Date: 20221026
  Serious: Yes (Life-Threatening, Hospitalization, Other)
  Sender: FDA-Public Use
  Company Number: JP-MSD-M2022-19793

PATIENT
  Age: 70 Year
  Sex: Male
  Weight: 87 kg

DRUGS (6)
  1. BRIDION [Suspect]
     Active Substance: SUGAMMADEX
     Indication: Neuromuscular blockade reversal
     Dosage: 190 MILLIGRAM, ONCE
     Route: 042
     Dates: start: 20220414, end: 20220414
  2. BRIDION [Suspect]
     Active Substance: SUGAMMADEX
     Dosage: 200 MILLIGRAM, ONCE
     Route: 042
     Dates: start: 20220414, end: 20220414
  3. ROCURONIUM BROMIDE [Concomitant]
     Active Substance: ROCURONIUM BROMIDE
     Indication: Neuromuscular blocking therapy
     Dosage: 70 MILLIGRAM, ONCE
     Route: 051
     Dates: start: 20220414, end: 20220414
  4. ROCURONIUM BROMIDE [Concomitant]
     Active Substance: ROCURONIUM BROMIDE
     Dosage: 20 MILLIGRAM, ONCE
     Route: 051
     Dates: start: 20220414, end: 20220414
  5. ROCURONIUM BROMIDE [Concomitant]
     Active Substance: ROCURONIUM BROMIDE
     Dosage: 24 MILLIGRAM, QH
     Route: 051
     Dates: start: 20220414, end: 20220414
  6. ROCURONIUM BROMIDE [Concomitant]
     Active Substance: ROCURONIUM BROMIDE
     Dosage: 15 MILLIGRAM, QH
     Route: 051
     Dates: start: 20220414, end: 20220414

REACTIONS (2)
  - Recurrence of neuromuscular blockade [Recovered/Resolved]
  - Accidental underdose [Unknown]

NARRATIVE: CASE EVENT DATE: 20220414
